FAERS Safety Report 5145768-4 (Version None)
Quarter: 2006Q4

REPORT INFORMATION
  Report Type: 
  Country: None (occurrence: None)
  Receive Date: 20060905
  Receipt Date: 20060619
  Transmission Date: 20070319
  Serious: Yes (Other)
  Sender: FDA-Public Use
  Company Number: 2006045312

PATIENT
  Age: 39 Year
  Sex: Male
  Weight: 124.2856 kg

DRUGS (3)
  1. LOPID [Suspect]
     Indication: BLOOD CHOLESTEROL INCREASED
     Dosage: 1200 MG (600 MG,2 IN 1 D)
  2. LOPID [Suspect]
     Indication: BLOOD TRIGLYCERIDES
     Dosage: 1200 MG (600 MG,2 IN 1 D)
  3. ALL OTHER THERAPEUTIC PRODUCTS (ALL OTHER THERAPEUTIC PRODUCTS) [Concomitant]

REACTIONS (5)
  - BLOOD CREATINE PHOSPHOKINASE INCREASED [None]
  - C-REACTIVE PROTEIN [None]
  - MUSCULOSKELETAL DISCOMFORT [None]
  - RED BLOOD CELL SEDIMENTATION RATE INCREASED [None]
  - RESTLESS LEGS SYNDROME [None]
